FAERS Safety Report 8231578-8 (Version None)
Quarter: 2012Q1

REPORT INFORMATION
  Report Type: 
  Country: None (occurrence: None)
  Receive Date: 20120323
  Receipt Date: 20120321
  Transmission Date: 20120608
  Serious: Yes (Death, Hospitalization)
  Sender: FDA-Public Use
  Company Number: PHHY2011MX83205

PATIENT
  Sex: Male

DRUGS (1)
  1. DIOVAN HCT [Suspect]
     Indication: HYPERTENSION
     Dosage: 01 DF (VALSARTAN 160 MG, HYDROCHLOROTHIAZIDE 12.5 MG), DAILY
     Dates: start: 20110701

REACTIONS (1)
  - RENAL FAILURE [None]
